FAERS Safety Report 7406877-X (Version None)
Quarter: 2011Q2

REPORT INFORMATION
  Report Type: 
  Country: None (occurrence: None)
  Receive Date: 20110406
  Receipt Date: 20110406
  Transmission Date: 20111010
  Serious: Yes (Death)
  Sender: FDA-Public Use
  Company Number: None

PATIENT
  Age: 77 Year
  Sex: Male
  Weight: 67.586 kg

DRUGS (1)
  1. LYRICA [Suspect]
     Indication: NEUROPATHY PERIPHERAL
     Dosage: STARTED 100MG A DAY 25 AM 25 NOON 50 PM LOWERED TO 25 BEDTIME
     Dates: start: 20100724, end: 20110123

REACTIONS (4)
  - ABNORMAL DREAMS [None]
  - COMPLETED SUICIDE [None]
  - VISUAL IMPAIRMENT [None]
  - FEELING ABNORMAL [None]
